FAERS Safety Report 4403931-1 (Version None)
Quarter: 2004Q3

REPORT INFORMATION
  Report Type: 
  Country: None (occurrence: None)
  Receive Date: 20040719
  Receipt Date: 20040715
  Transmission Date: 20050211
  Serious: Yes (Other)
  Sender: FDA-Public Use
  Company Number: US-JNJFOC-20040703872

PATIENT
  Sex: 0

DRUGS (1)
  1. CISAPRIDE (CISAPRIDE) [Suspect]
     Indication: GASTROOESOPHAGEAL REFLUX DISEASE
     Dosage: 0.2 MG /KG, 4 IN 1 DAY

REACTIONS (1)
  - ELECTROCARDIOGRAM QT PROLONGED [None]
